FAERS Safety Report 9326575 (Version 1)
Quarter: 2013Q2

REPORT INFORMATION
  Report Type: Spontaneous
  Country: US (occurrence: US)
  Receive Date: 20130604
  Receipt Date: 20130604
  Transmission Date: 20140414
  Serious: Yes (Hospitalization, Disabling, Other)
  Sender: FDA-Public Use
  Company Number: US-009507513-1201USA03543

PATIENT
  Age: 70 Year
  Sex: Female

DRUGS (2)
  1. FOSAMAX [Suspect]
     Indication: OSTEOPOROSIS
     Dosage: ^ABOUT 20 YEARS AGO^
     Route: 048
     Dates: end: 201201
  2. SINGULAIR [Concomitant]
     Route: 048

REACTIONS (3)
  - Femur fracture [Recovering/Resolving]
  - Femur fracture [Recovering/Resolving]
  - Femur fracture [Unknown]
